FAERS Safety Report 9216796 (Version 4)
Quarter: 2013Q2

REPORT INFORMATION
  Report Type: Spontaneous
  Country: US (occurrence: US)
  Receive Date: 20130408
  Receipt Date: 20130510
  Transmission Date: 20140414
  Serious: No
  Sender: FDA-Public Use
  Company Number: US-PFIZER INC-2013109119

PATIENT
  Age: 89 Year
  Sex: Female
  Weight: 74.83 kg

DRUGS (5)
  1. CELEBREX [Suspect]
     Indication: ARTHRITIS
     Dosage: 200 MG, 2X/DAY
     Route: 048
     Dates: end: 201303
  2. CELEBREX [Suspect]
     Indication: PAIN
  3. CELEBREX [Suspect]
     Indication: POLYMYALGIA RHEUMATICA
  4. CELEBREX [Suspect]
     Indication: PAIN
  5. METHYLDOPA [Concomitant]
     Indication: HYPERTENSION
     Dosage: UNK

REACTIONS (1)
  - Drug ineffective [Unknown]
